FAERS Safety Report 17683616 (Version 2)
Quarter: 2020Q2

REPORT INFORMATION
  Report Type: Report from Study
  Country: US (occurrence: US)
  Receive Date: 20200420
  Receipt Date: 20200617
  Transmission Date: 20200714
  Serious: Yes (Other)
  Sender: FDA-Public Use
  Company Number: US-ROCHE-2510051

PATIENT
  Age: 60 Year
  Sex: Female
  Weight: 86.26 kg

DRUGS (4)
  1. TECFIDERA [Concomitant]
     Active Substance: DIMETHYL FUMARATE
  2. REBIF [Concomitant]
     Active Substance: INTERFERON BETA-1A
  3. OCREVUS [Suspect]
     Active Substance: OCRELIZUMAB
     Indication: RELAPSING MULTIPLE SCLEROSIS
     Dosage: DATE OF TREATMENT: 18/MAY/2018, 30/NOV/2018, 07/JUN/2019, 03/JAN/2020
     Route: 042
     Dates: start: 201805
  4. TYSABRI [Concomitant]
     Active Substance: NATALIZUMAB

REACTIONS (6)
  - Fall [Unknown]
  - Tenoplasty [Recovered/Resolved]
  - Postoperative wound infection [Recovered/Resolved]
  - Bone lesion excision [Recovered/Resolved]
  - Gait disturbance [Unknown]
  - Tendon rupture [Recovered/Resolved]

NARRATIVE: CASE EVENT DATE: 20191209
